FAERS Safety Report 13430338 (Version 1)
Quarter: 2017Q2

REPORT INFORMATION
  Report Type: Spontaneous
  Country: US (occurrence: US)
  Receive Date: 20170411
  Receipt Date: 20170411
  Transmission Date: 20170830
  Serious: Yes (Hospitalization)
  Sender: FDA-Public Use
  Company Number: None

PATIENT
  Age: 67 Year
  Sex: Male
  Weight: 128.2 kg

DRUGS (1)
  1. METOPROLOL. [Suspect]
     Active Substance: METOPROLOL
     Route: 048
     Dates: start: 20160415

REACTIONS (5)
  - Dizziness [None]
  - Syncope [None]
  - Dehydration [None]
  - Diarrhoea [None]
  - Dizziness postural [None]

NARRATIVE: CASE EVENT DATE: 20160415
